FAERS Safety Report 18701541 (Version 2)
Quarter: 2021Q1

REPORT INFORMATION
  Report Type: Spontaneous
  Country: SA (occurrence: SA)
  Receive Date: 20210105
  Receipt Date: 20210111
  Transmission Date: 20210419
  Serious: Yes (Other)
  Sender: FDA-Public Use
  Company Number: SA-PFIZER INC-2020519418

PATIENT
  Age: 64 Year
  Sex: Female

DRUGS (1)
  1. IBRANCE [Suspect]
     Active Substance: PALBOCICLIB
     Dosage: 1 DF, DAILY(1 PILL DAILY)
     Route: 048
     Dates: end: 202011

REACTIONS (3)
  - Neoplasm progression [Unknown]
  - Pulmonary embolism [Unknown]
  - Peripheral swelling [Unknown]
